FAERS Safety Report 5015373-9 (Version None)
Quarter: 2006Q2

REPORT INFORMATION
  Report Type: 
  Country: None (occurrence: None)
  Receive Date: 20060530
  Receipt Date: 20060530
  Transmission Date: 20061013
  Serious: Yes (Other)
  Sender: FDA-Public Use
  Company Number: None

PATIENT
  Age: 77 Year
  Sex: Female
  Weight: 77.1115 kg

DRUGS (8)
  1. SEPTOCAINE [Suspect]
     Indication: INFILTRATION ANAESTHESIA
     Dosage: 1 CC BY INFILTRATION
     Route: 002
     Dates: start: 20060519
  2. ACCUPRIL [Concomitant]
  3. VERAPAMIL [Concomitant]
  4. ATENOLOL [Concomitant]
  5. ZOCOR [Concomitant]
  6. HYDROCHLOROTHIAZIDE [Concomitant]
  7. METFORMIN [Concomitant]
  8. EYEDROPS [Concomitant]

REACTIONS (5)
  - ANAESTHETIC COMPLICATION [None]
  - HYPOAESTHESIA [None]
  - HYPOAESTHESIA ORAL [None]
  - PARAESTHESIA [None]
  - PARAESTHESIA ORAL [None]
